FAERS Safety Report 25174880 (Version 1)
Quarter: 2025Q2

REPORT INFORMATION
  Report Type: Spontaneous
  Country: GB (occurrence: GB)
  Receive Date: 20250408
  Receipt Date: 20250408
  Transmission Date: 20250717
  Serious: Yes (Life-Threatening, Other)
  Sender: PFIZER
  Company Number: None

PATIENT
  Age: 53 Year
  Sex: Female
  Weight: 72 kg

DRUGS (10)
  1. DOCETAXEL [Suspect]
     Active Substance: DOCETAXEL
     Dates: start: 20250327
  2. EMLA [Concomitant]
     Active Substance: LIDOCAINE\PRILOCAINE
     Dates: start: 20250204, end: 20250306
  3. NITROFURANTOIN [Concomitant]
     Active Substance: NITROFURANTOIN
     Dosage: 1 DF, 2X/DAY (TAKE ONE TWICE DAILY)
     Dates: start: 20250311, end: 20250319
  4. MORPHINE SULFATE [Concomitant]
     Active Substance: MORPHINE SULFATE
     Indication: Breakthrough pain
     Route: 048
     Dates: start: 20250204, end: 20250214
  5. FEXOFENADINE [Concomitant]
     Active Substance: FEXOFENADINE HYDROCHLORIDE
     Dosage: 1 DF, 1X/DAY (TAKE ONE DAILY)
     Dates: start: 20210802
  6. CALCIUM CARBONATE [Concomitant]
     Active Substance: CALCIUM CARBONATE
     Dosage: 2 DF, 2X/DAY (TAKE TWO TWICE DAILY)
     Dates: start: 20211101
  7. ALENDRONIC ACID [Concomitant]
     Active Substance: ALENDRONIC ACID
     Dosage: 1 DF, WEEKLY (TAKE ONE WEEKLY)
     Dates: start: 20211101
  8. LETROZOLE [Concomitant]
     Active Substance: LETROZOLE
     Dosage: 1 DF, 1X/DAY (TAKE ONE ONCE DAILY)
     Dates: start: 20211101
  9. PURIFIED WATER [Concomitant]
     Active Substance: WATER
     Dates: start: 20221115
  10. EXEMESTANE [Concomitant]
     Active Substance: EXEMESTANE
     Dosage: 1 DF, 1X/DAY (TAKE ONE ONCE DAILY)
     Dates: start: 20241114

REACTIONS (1)
  - Anaphylactic reaction [Recovered/Resolved]
